FAERS Safety Report 9596667 (Version 1)
Quarter: 2013Q4

REPORT INFORMATION
  Report Type: Spontaneous
  Country: IT (occurrence: IT)
  Receive Date: 20131004
  Receipt Date: 20131004
  Transmission Date: 20140711
  Serious: Yes (Life-Threatening)
  Sender: FDA-Public Use
  Company Number: IT-PFIZER INC-2013285464

PATIENT
  Age: 51 Year
  Sex: Male

DRUGS (11)
  1. TRIATEC [Suspect]
     Dosage: UNK
  2. CUBICIN [Suspect]
     Indication: ERYSIPELAS
     Dosage: 500 MG, DAILY
     Route: 042
     Dates: start: 20130831, end: 20130902
  3. CUBICIN [Suspect]
     Indication: CELLULITIS
  4. ACETYLSALICYLIC ACID [Concomitant]
     Dosage: UNK
  5. SIMVASTATIN [Concomitant]
     Dosage: UNK
  6. LANSOPRAZOLE [Concomitant]
     Dosage: UNK
     Dates: start: 20130824, end: 20130901
  7. CITALOPRAM [Concomitant]
     Dosage: UNK
  8. MERREM [Concomitant]
     Dosage: UNK
  9. CLEXANE [Concomitant]
     Dosage: UNK
     Dates: start: 20130824, end: 20130901
  10. TAVOR [Concomitant]
     Dosage: UNK
  11. TACHIDOL [Concomitant]
     Dosage: UNK

REACTIONS (2)
  - Rhabdomyolysis [Recovering/Resolving]
  - Dyspepsia [Recovering/Resolving]
